FAERS Safety Report 8408403 (Version 4)
Quarter: 2013Q2

REPORT INFORMATION
  Report Type: Spontaneous
  Country: CA (occurrence: CA)
  Receive Date: 20120216
  Receipt Date: 20130610
  Transmission Date: 20140414
  Serious: Yes (Hospitalization)
  Sender: FDA-Public Use
  Company Number: CA-JNJFOC-20120203932

PATIENT
  Age: 45 Year
  Sex: Female
  Weight: 68 kg

DRUGS (6)
  1. REMICADE [Suspect]
     Indication: CROHN^S DISEASE
     Route: 042
     Dates: start: 20120516
  2. REMICADE [Suspect]
     Indication: CROHN^S DISEASE
     Route: 042
     Dates: start: 20111229
  3. REMICADE [Suspect]
     Indication: CROHN^S DISEASE
     Route: 042
     Dates: start: 20110627
  4. REMICADE [Suspect]
     Indication: CROHN^S DISEASE
     Dosage: RE-LOADING DOSE Q2, THEN 6 AND THEN 8 WEEKS
     Route: 042
     Dates: start: 20120601, end: 20120601
  5. ALL OTHER THERAPEUTICS [Concomitant]
     Route: 065
  6. TINZAPARIN [Concomitant]
     Route: 065

REACTIONS (12)
  - Procedural complication [Unknown]
  - Flushing [Unknown]
  - Colectomy [Unknown]
  - Chest pain [Recovered/Resolved]
  - Infusion related reaction [Recovered/Resolved]
  - Vomiting [Recovered/Resolved]
  - Myalgia [Recovered/Resolved]
  - Asthenia [Recovered/Resolved]
  - Headache [Unknown]
  - Back pain [Recovered/Resolved]
  - Nausea [Unknown]
  - Abdominal pain [Unknown]
